FAERS Safety Report 5446216-7 (Version None)
Quarter: 2007Q3

REPORT INFORMATION
  Report Type: 
  Country: None (occurrence: None)
  Receive Date: 20070731
  Receipt Date: 20070118
  Transmission Date: 20080115
  Serious: Yes (Other)
  Sender: FDA-Public Use
  Company Number: US-2007-001733

PATIENT
  Age: 51 Year
  Sex: Female
  Weight: 95 kg

DRUGS (1)
  1. MAGNEVIST INJECTION(GADOPENTETATE DIMEGLUMINE) INJECTION [Suspect]
     Indication: NUCLEAR MAGNETIC RESONANCE IMAGING BRAIN
     Dosage: 1 ML, 1 DOSE, INTRAVENOUS
     Route: 042
     Dates: start: 20070118, end: 20070118

REACTIONS (4)
  - CONVULSION [None]
  - DYSPNOEA [None]
  - ERYTHEMA [None]
  - INJECTION SITE REACTION [None]
